FAERS Safety Report 9416816 (Version 1)
Quarter: 2013Q3

REPORT INFORMATION
  Report Type: Spontaneous
  Country: US (occurrence: US)
  Receive Date: 20130724
  Receipt Date: 20130724
  Transmission Date: 20140515
  Serious: No
  Sender: FDA-Public Use
  Company Number: US-GALDERMA-US13001454

PATIENT
  Age: 74 Year
  Sex: Female
  Weight: 86 kg

DRUGS (13)
  1. ORACEA (DOXYCYCLINE, USP) CAPSULES 40 MG [Suspect]
     Indication: ROSACEA
     Route: 048
     Dates: start: 201301, end: 20130506
  2. METROGEL  (METRONIDAZOLE) GEL, 1% [Concomitant]
     Indication: ROSACEA
     Route: 061
     Dates: start: 20130201
  3. VERAPAMIL [Concomitant]
     Indication: HYPERTENSION
     Dosage: 240 MG
     Route: 048
     Dates: start: 2009
  4. LISINOPRIL [Concomitant]
     Indication: HYPERTENSION
     Route: 048
     Dates: start: 2009
  5. TRIAMTERENE [Concomitant]
     Indication: HYPERTENSION
     Route: 048
     Dates: start: 2009
  6. LIPITOR [Concomitant]
     Route: 048
     Dates: start: 2009
  7. BABY ASPIRIN [Concomitant]
     Indication: PROPHYLAXIS
     Route: 048
     Dates: start: 2003
  8. CLARITIN [Concomitant]
     Indication: SEASONAL ALLERGY
     Route: 048
  9. VITAMIN D [Concomitant]
     Indication: VITAMIN SUPPLEMENTATION
     Route: 048
  10. CALCIUM [Concomitant]
     Indication: MINERAL SUPPLEMENTATION
     Route: 048
  11. FISH OIL [Concomitant]
     Indication: SUPPLEMENTATION THERAPY
     Route: 048
  12. SINGULAR [Concomitant]
     Indication: ASTHMA
     Route: 048
  13. CENTRUM SILVER [Concomitant]
     Route: 048

REACTIONS (7)
  - Epistaxis [Recovered/Resolved]
  - Throat irritation [Recovered/Resolved]
  - Nasal congestion [Recovered/Resolved]
  - Sneezing [Recovered/Resolved]
  - Nasal discomfort [Recovered/Resolved]
  - Nasal mucosal disorder [Recovered/Resolved]
  - Ear pruritus [Recovered/Resolved]
